FAERS Safety Report 16737957 (Version 1)
Quarter: 2019Q3

REPORT INFORMATION
  Report Type: Spontaneous
  Country: GB (occurrence: GB)
  Receive Date: 20190824
  Receipt Date: 20190824
  Transmission Date: 20191005
  Serious: Yes (Life-Threatening, Hospitalization)
  Sender: FDA-Public Use
  Company Number: GB-TEVA-2019-GB-1095732

PATIENT
  Sex: Male
  Weight: 100 kg

DRUGS (1)
  1. ZOLEDRONIC ACID [Suspect]
     Active Substance: ZOLEDRONIC ACID
     Indication: PROPHYLAXIS
     Dosage: 4 MILLIGRAM
     Route: 042
     Dates: start: 20190716

REACTIONS (5)
  - Hypocalcaemia [Unknown]
  - Neutropenic sepsis [Unknown]
  - Pyrexia [Unknown]
  - Pancytopenia [Not Recovered/Not Resolved]
  - Hypophosphataemia [Unknown]

NARRATIVE: CASE EVENT DATE: 20190717
